FAERS Safety Report 6576316-X (Version None)
Quarter: 2010Q1

REPORT INFORMATION
  Report Type: 
  Country: None (occurrence: None)
  Receive Date: 20100210
  Receipt Date: 20100204
  Transmission Date: 20100710
  Serious: Yes (Other)
  Sender: FDA-Public Use
  Company Number: US-ASTRAZENECA-2007UW12247

PATIENT
  Age: 46 Year
  Sex: Female
  Weight: 75.7 kg

DRUGS (23)
  1. SEROQUEL [Suspect]
     Indication: BIPOLAR DISORDER
     Route: 048
     Dates: start: 20000101, end: 20040301
  2. SEROQUEL [Suspect]
     Indication: SCHIZOPHRENIA
     Route: 048
     Dates: start: 20000101, end: 20040301
  3. SEROQUEL [Suspect]
     Dosage: 25-1000 MG
     Route: 048
     Dates: start: 20000109
  4. SEROQUEL [Suspect]
     Dosage: 25-1000 MG
     Route: 048
     Dates: start: 20000109
  5. ZYPREXA [Concomitant]
     Dates: start: 20041101
  6. ZYPREXA [Concomitant]
     Dosage: 15 EVERY NIGHT
     Dates: start: 20061129
  7. ABILIFY [Concomitant]
     Dates: start: 20050401
  8. HALDOL [Concomitant]
  9. STELAZINE [Concomitant]
     Dates: start: 20000101
  10. CELEXA [Concomitant]
     Dates: start: 19980101
  11. CELEXA [Concomitant]
     Dosage: 20-60 MG
     Route: 048
     Dates: start: 20000109
  12. RISPERDAL [Concomitant]
     Indication: SLEEP DISORDER
     Dosage: 2 WEEKS
  13. RISPERDAL [Concomitant]
     Dates: start: 20040202
  14. LORAZEPAM [Concomitant]
     Dosage: 1-2 MG
     Dates: start: 20000115
  15. THIOTHIXENE [Concomitant]
     Dosage: 2-5 MG
     Dates: start: 20000115
  16. METFORMIN HCL [Concomitant]
     Dates: start: 20030101
  17. TEMAZEPAM [Concomitant]
     Dosage: 30-60 MG
     Dates: start: 20000111
  18. MIRTAZAPINE [Concomitant]
     Dosage: 3.75-15 MG
     Dates: start: 20000112
  19. ZOLPIDEM TARTRATE [Concomitant]
     Dates: start: 20000113
  20. LIPITOR [Concomitant]
     Dates: start: 20040202
  21. TRICOR [Concomitant]
     Dates: start: 20061129
  22. SYNTHROID [Concomitant]
     Dates: start: 20040202
  23. NEXIUM [Concomitant]
     Dates: start: 20061129

REACTIONS (6)
  - DIABETES MELLITUS [None]
  - DIABETIC EYE DISEASE [None]
  - HYPERINSULINAEMIA [None]
  - INSULIN RESISTANCE [None]
  - OBESITY [None]
  - TYPE 2 DIABETES MELLITUS [None]
